FAERS Safety Report 8520354-4 (Version None)
Quarter: 2012Q3

REPORT INFORMATION
  Report Type: 
  Country: None (occurrence: None)
  Receive Date: 20120719
  Receipt Date: 20120615
  Transmission Date: 20120928
  Serious: Yes (Death, Other)
  Sender: FDA-Public Use
  Company Number: US-ELI_LILLY_AND_COMPANY-US201205003237

PATIENT
  Sex: Female

DRUGS (4)
  1. FOLIC ACID [Concomitant]
     Indication: PREMEDICATION
     Dosage: UNK UG, OTHER
     Route: 048
  2. ALIMTA [Suspect]
     Indication: OVARIAN CANCER STAGE III
     Dosage: 1000 MG/M2, OTHER
  3. VITAMIN B-12 [Concomitant]
     Indication: PREMEDICATION
     Dosage: 1,000 UG, OTHER
     Route: 030
  4. DEXAMETHASONE [Concomitant]
     Indication: PROPHYLAXIS
     Dosage: 4 MG, OTHER
     Route: 048

REACTIONS (5)
  - DIARRHOEA [None]
  - OPPORTUNISTIC INFECTION [None]
  - NEUTROPENIA [None]
  - THROMBOCYTOPENIA [None]
  - STOMATITIS [None]
